FAERS Safety Report 15867435 (Version 1)
Quarter: 2019Q1

REPORT INFORMATION
  Report Type: Spontaneous
  Country: US (occurrence: US)
  Receive Date: 20190125
  Receipt Date: 20190125
  Transmission Date: 20190417
  Serious: No
  Sender: FDA-Public Use
  Company Number: US-MYLANLABS-2019M1003279

PATIENT
  Sex: Male
  Weight: 64 kg

DRUGS (3)
  1. FULPHILA [Suspect]
     Active Substance: PEGFILGRASTIM-JMDB
     Indication: CHEMOTHERAPY
     Dosage: 1 UNK
     Route: 058
     Dates: start: 20181203, end: 20181224
  2. RITUXAN [Concomitant]
     Active Substance: RITUXIMAB
     Dosage: UNK
  3. EPOCH                              /00928303/ [Concomitant]
     Dosage: UNK

REACTIONS (2)
  - Bone pain [Unknown]
  - Malaise [Recovering/Resolving]

NARRATIVE: CASE EVENT DATE: 2018
